FAERS Safety Report 10738597 (Version 4)
Quarter: 2015Q2

REPORT INFORMATION
  Report Type: Spontaneous
  Country: US (occurrence: US)
  Receive Date: 20150126
  Receipt Date: 20150420
  Transmission Date: 20150821
  Serious: Yes (Other)
  Sender: FDA-Public Use
  Company Number: US-PFIZER INC-2015029753

PATIENT
  Age: 43 Year
  Sex: Female

DRUGS (4)
  1. LIPITOR [Suspect]
     Active Substance: ATORVASTATIN CALCIUM
     Indication: BLOOD TRIGLYCERIDES INCREASED
     Dosage: 10-80 MG ONE TABLET, DAILY
     Route: 048
     Dates: start: 201011, end: 201306
  2. PROPULSID [Concomitant]
     Active Substance: CISAPRIDE
     Indication: GASTROOESOPHAGEAL REFLUX DISEASE
     Dosage: 10 MG, DAILY
     Dates: start: 199706, end: 2012
  3. ALBUTEROL. [Concomitant]
     Active Substance: ALBUTEROL
     Indication: ASTHMA
     Dosage: 83 MG, AS NEEDED
     Dates: start: 199609
  4. LIPITOR [Suspect]
     Active Substance: ATORVASTATIN CALCIUM
     Indication: BLOOD CHOLESTEROL INCREASED
     Dosage: 10-80 MG ONE TABLET, DAILY
     Route: 048
     Dates: start: 2010, end: 2014

REACTIONS (3)
  - Muscle spasms [Unknown]
  - Type 2 diabetes mellitus [Not Recovered/Not Resolved]
  - Emotional distress [Not Recovered/Not Resolved]

NARRATIVE: CASE EVENT DATE: 201009
